FAERS Safety Report 10192505 (Version 1)
Quarter: 2014Q2

REPORT INFORMATION
  Report Type: Spontaneous
  Country: CN (occurrence: CN)
  Receive Date: 20140523
  Receipt Date: 20140523
  Transmission Date: 20141212
  Serious: Yes (Other)
  Sender: FDA-Public Use
  Company Number: CN-B.I. PHARMACEUTICALS,INC./RIDGEFIELD-2014-BI-22690YA

PATIENT
  Sex: Female
  Weight: 55 kg

DRUGS (2)
  1. HARNAL [Suspect]
     Indication: DIURETIC THERAPY
     Dosage: 0.2 MG
     Route: 048
     Dates: start: 20130516, end: 20130606
  2. UNKNOWNDRUG (CALCULUS DISCHARGING GRANULES) [Concomitant]
     Dosage: 60 G
     Route: 065
     Dates: start: 20130516

REACTIONS (1)
  - Bladder papilloma [Unknown]
